FAERS Safety Report 5271679-X (Version None)
Quarter: 2007Q1

REPORT INFORMATION
  Report Type: 
  Country: None (occurrence: None)
  Receive Date: 20070321
  Receipt Date: 20070309
  Transmission Date: 20070707
  Serious: Yes (Other)
  Sender: FDA-Public Use
  Company Number: US-PFIZER INC-2007019728

PATIENT
  Age: 76 Year
  Sex: Male
  Weight: 81.6 kg

DRUGS (9)
  1. CHANTIX [Suspect]
     Indication: SMOKING CESSATION THERAPY
     Dates: start: 20070209, end: 20070304
  2. BENADRYL [Suspect]
     Indication: RASH
  3. TOPROL-XL [Concomitant]
  4. TRIAMTERENE AND HYDROCHLOROTHIAZIDE [Concomitant]
  5. FISH OIL [Concomitant]
  6. LIPITOR [Concomitant]
  7. WARFARIN SODIUM [Concomitant]
  8. MULTI-VITAMINS [Concomitant]
  9. LANOXIN [Concomitant]

REACTIONS (5)
  - ABDOMINAL PAIN UPPER [None]
  - ANOREXIA [None]
  - FATIGUE [None]
  - PETECHIAE [None]
  - VASCULITIS [None]
